FAERS Safety Report 16734489 (Version 1)
Quarter: 2019Q3

REPORT INFORMATION
  Report Type: Report from Study
  Country: None (occurrence: US)
  Receive Date: 20190823
  Receipt Date: 20190823
  Transmission Date: 20191005
  Serious: Yes (Other)
  Sender: FDA-Public Use
  Company Number: US-ABBVIE-16K-163-1552691-00

PATIENT
  Sex: Male

DRUGS (3)
  1. NEURONTIN [Concomitant]
     Active Substance: GABAPENTIN
     Indication: PRODUCT USED FOR UNKNOWN INDICATION
  2. NEURONTIN [Concomitant]
     Active Substance: GABAPENTIN
  3. HUMIRA [Suspect]
     Active Substance: ADALIMUMAB
     Indication: RHEUMATOID ARTHRITIS
     Route: 058
     Dates: end: 2019

REACTIONS (7)
  - Back pain [Recovering/Resolving]
  - Hip arthroplasty [Recovered/Resolved]
  - Prosthesis implantation [Unknown]
  - Blood test abnormal [Unknown]
  - Bone cyst [Unknown]
  - Arthralgia [Recovering/Resolving]
  - Neuropathy peripheral [Not Recovered/Not Resolved]
